FAERS Safety Report 5855939-7 (Version None)
Quarter: 2008Q3

REPORT INFORMATION
  Report Type: 
  Country: None (occurrence: None)
  Receive Date: 20080821
  Receipt Date: 20080821
  Transmission Date: 20090109
  Serious: No
  Sender: FDA-Public Use
  Company Number: None

PATIENT
  Age: 40 Year
  Sex: Female

DRUGS (3)
  1. AVELOX [Suspect]
     Indication: BRONCHITIS
     Dosage: 400MG DAILY IV
     Route: 042
     Dates: start: 20080624, end: 20080625
  2. IV STEROIDS [Concomitant]
  3. INHALED BRONCHODILATORS [Concomitant]

REACTIONS (4)
  - BRONCHOSPASM [None]
  - CONDITION AGGRAVATED [None]
  - HYPOTENSION [None]
  - RASH MACULO-PAPULAR [None]
